FAERS Safety Report 24705870 (Version 1)
Quarter: 2024Q4

REPORT INFORMATION
  Report Type: Spontaneous
  Country: PL (occurrence: PL)
  Receive Date: 20241206
  Receipt Date: 20241206
  Transmission Date: 20250115
  Serious: Yes (Hospitalization, Other)
  Sender: SANOFI AVENTIS
  Company Number: PL-DialogSolutions-SAAVPROD-PI702964-C1

PATIENT
  Age: 52 Year
  Sex: Female

DRUGS (3)
  1. DUPILUMAB [Suspect]
     Active Substance: DUPILUMAB
     Indication: Asthma
     Dosage: 400 MG
     Dates: start: 202306
  2. DUPILUMAB [Suspect]
     Active Substance: DUPILUMAB
     Dosage: 200 MG, QOW (MAINTAINCE DOSE)
  3. DUPILUMAB [Suspect]
     Active Substance: DUPILUMAB
     Dosage: UNK (RESTARTED)

REACTIONS (10)
  - Eosinophilic pneumonia [Unknown]
  - Eosinophilia [Unknown]
  - Cough [Unknown]
  - Fatigue [Unknown]
  - Erythema nodosum [Unknown]
  - Arthritis [Unknown]
  - Oedema peripheral [Unknown]
  - Nodule [Unknown]
  - Arthralgia [Unknown]
  - Skin lesion [Unknown]

NARRATIVE: CASE EVENT DATE: 20230101
